FAERS Safety Report 6479537-X (Version None)
Quarter: 2009Q4

REPORT INFORMATION
  Report Type: 
  Country: None (occurrence: None)
  Receive Date: 20091208
  Receipt Date: 20091127
  Transmission Date: 20100525
  Serious: Yes (Other)
  Sender: FDA-Public Use
  Company Number: FR-ELI_LILLY_AND_COMPANY-FR200911006943

PATIENT
  Age: 32 Year
  Sex: Male

DRUGS (1)
  1. UMATROPE [Suspect]
     Dosage: UNK, UNKNOWN
     Route: 058
     Dates: start: 19900101, end: 19950101

REACTIONS (3)
  - BONE CYST [None]
  - BONE PAIN [None]
  - EXOSTOSIS [None]
